FAERS Safety Report 13306533 (Version 1)
Quarter: 2017Q1

REPORT INFORMATION
  Report Type: Report from Study
  Country: US (occurrence: US)
  Receive Date: 20170308
  Receipt Date: 20170308
  Transmission Date: 20170428
  Serious: Yes (Other)
  Sender: FDA-Public Use
  Company Number: US-UCBSA-2016037392

PATIENT
  Sex: Female

DRUGS (2)
  1. LEVETIRACETAM. [Suspect]
     Active Substance: LEVETIRACETAM
     Indication: SEIZURE
     Dosage: 1000 MG DAILY
  2. DILANTIN [Concomitant]
     Active Substance: PHENYTOIN
     Indication: SEIZURE
     Dosage: 600 MG DAILY

REACTIONS (12)
  - Activities of daily living impaired [Unknown]
  - Weight increased [Unknown]
  - Drug ineffective [Unknown]
  - Anger [Unknown]
  - Seizure [Unknown]
  - Suicidal ideation [Unknown]
  - Asthenia [Unknown]
  - Screaming [Unknown]
  - Partial seizures [Unknown]
  - Status epilepticus [Unknown]
  - Depression [Unknown]
  - Somnolence [Unknown]
